FAERS Safety Report 19886086 (Version 3)
Quarter: 2021Q4

REPORT INFORMATION
  Report Type: Report from Study
  Country: MX (occurrence: MX)
  Receive Date: 20210928
  Receipt Date: 20211019
  Transmission Date: 20220303
  Serious: Yes (Life-Threatening)
  Sender: FDA-Public Use
  Company Number: NVSC2021MX218855

PATIENT
  Age: 74 Year
  Sex: Male
  Weight: 74 kg

DRUGS (1)
  1. DIOVAN [Suspect]
     Active Substance: VALSARTAN
     Indication: Hypertension
     Dosage: 1 DF, BID, NO EXACT START DATE PROVIDED, APPROXIMATE DATE
     Route: 048
     Dates: start: 202011

REACTIONS (6)
  - Fear of death [Unknown]
  - Memory impairment [Unknown]
  - Illness [Unknown]
  - Dysgeusia [Recovered/Resolved]
  - Malaise [Recovered/Resolved]
  - Inappropriate schedule of product administration [Unknown]

NARRATIVE: CASE EVENT DATE: 20210923
